FAERS Safety Report 22045329 (Version 1)
Quarter: 2023Q1

REPORT INFORMATION
  Report Type: Report from Study
  Country: US (occurrence: US)
  Receive Date: 20230228
  Receipt Date: 20230228
  Transmission Date: 20230417
  Serious: No
  Sender: FDA-Public Use
  Company Number: US-JNJFOC-20230221050

PATIENT
  Sex: Female

DRUGS (1)
  1. TREMFYA [Suspect]
     Active Substance: GUSELKUMAB
     Indication: Product used for unknown indication
     Dosage: LAST INJECTION WAS 8 WEEKS AGO
     Route: 065

REACTIONS (4)
  - Syringe issue [Unknown]
  - Injection site pain [Unknown]
  - Needle issue [Unknown]
  - Nervousness [Unknown]
